FAERS Safety Report 15670837 (Version 2)
Quarter: 2018Q4

REPORT INFORMATION
  Report Type: Spontaneous
  Country: JP (occurrence: JP)
  Receive Date: 20181129
  Receipt Date: 20181129
  Transmission Date: 20190205
  Serious: Yes (Hospitalization)
  Sender: FDA-Public Use
  Company Number: PHJP2018JP019894

PATIENT
  Sex: Male

DRUGS (5)
  1. PREDNISOLONE. [Suspect]
     Active Substance: PREDNISOLONE
     Dosage: 20 MG, QD
     Route: 065
     Dates: start: 201704
  2. ADALIMUMAB [Suspect]
     Active Substance: ADALIMUMAB
     Indication: UVEITIS
     Dosage: UNK
     Route: 065
     Dates: start: 201707
  3. CICLOSPORIN [Suspect]
     Active Substance: CYCLOSPORINE
     Indication: UVEITIS
     Dosage: UNK
     Route: 065
     Dates: start: 201704
  4. METHOTREXAT [Suspect]
     Active Substance: METHOTREXATE
     Indication: UVEITIS
     Dosage: UNK
     Route: 065
     Dates: start: 201704
  5. PREDNISOLONE. [Suspect]
     Active Substance: PREDNISOLONE
     Indication: UVEITIS
     Dosage: 30 MG, QD
     Route: 065
     Dates: start: 201605, end: 201704

REACTIONS (11)
  - Brain abscess [Unknown]
  - Renal disorder [Unknown]
  - Blindness [Unknown]
  - Ocular hyperaemia [Unknown]
  - Tuberculoma of central nervous system [Unknown]
  - Seizure [Unknown]
  - Renal cyst [Unknown]
  - Product use in unapproved indication [Unknown]
  - Pyrexia [Unknown]
  - Pulmonary artery aneurysm [Unknown]
  - Decreased appetite [Unknown]

NARRATIVE: CASE EVENT DATE: 201801
